FAERS Safety Report 4702210-2 (Version None)
Quarter: 2005Q2

REPORT INFORMATION
  Report Type: 
  Country: None (occurrence: None)
  Receive Date: 20050628
  Receipt Date: 20050628
  Transmission Date: 20051028
  Serious: Yes (Other)
  Sender: FDA-Public Use
  Company Number: None

PATIENT
  Age: 54 Year
  Sex: Female
  Weight: 74.8435 kg

DRUGS (3)
  1. ENBREL [Suspect]
     Indication: PSORIASIS
     Dosage: 50MG    SC    CUTANEOUS
     Route: 058
     Dates: start: 20030710, end: 20050622
  2. SORIATANE [Concomitant]
  3. CORTICOSTEROIDS [Concomitant]

REACTIONS (3)
  - FAT TISSUE INCREASED [None]
  - GRANULOMA [None]
  - SARCOIDOSIS [None]
